FAERS Safety Report 7285863-7 (Version None)
Quarter: 2011Q1

REPORT INFORMATION
  Report Type: 
  Country: None (occurrence: None)
  Receive Date: 20110128
  Receipt Date: 20110113
  Transmission Date: 20110831
  Serious: Yes (Other)
  Sender: FDA-Public Use
  Company Number: US-1184491

PATIENT
  Sex: Female

DRUGS (1)
  1. AZOPT [Suspect]
     Indication: GLAUCOMA
     Dosage: 1 GTT TID OPHTHALMIC
     Route: 047
     Dates: start: 20100204, end: 20101227

REACTIONS (7)
  - HEADACHE [None]
  - EYE PAIN [None]
  - ALOPECIA [None]
  - VISION BLURRED [None]
  - DRUG INEFFECTIVE [None]
  - BLINDNESS UNILATERAL [None]
  - EYE SWELLING [None]
